FAERS Safety Report 6997101-0 (Version None)
Quarter: 2010Q3

REPORT INFORMATION
  Report Type: 
  Country: None (occurrence: None)
  Receive Date: 20100918
  Receipt Date: 20090929
  Transmission Date: 20110219
  Serious: No
  Sender: FDA-Public Use
  Company Number: US-WYE-H10814309

PATIENT
  Sex: Female
  Weight: 134.38 kg

DRUGS (10)
  1. PRISTIQ [Suspect]
     Indication: DEPRESSION
     Route: 048
     Dates: start: 20090824
  2. ROSUVASTATIN [Concomitant]
  3. EXFORGE [Concomitant]
  4. CALCIUM [Concomitant]
  5. LEVOTHYROXINE [Concomitant]
  6. MULTIPLE VITAMINS [Concomitant]
  7. FISH OIL, HYDROGENATED [Concomitant]
  8. WELLBUTRIN [Suspect]
     Dosage: TAPERING OFF
     Dates: end: 20090828
  9. WELLBUTRIN [Suspect]
     Route: 048
     Dates: start: 20090909
  10. ALENDRONATE SODIUM [Concomitant]

REACTIONS (1)
  - INSOMNIA [None]
